FAERS Safety Report 4479105-5 (Version None)
Quarter: 2004Q3

REPORT INFORMATION
  Report Type: 
  Country: None (occurrence: None)
  Receive Date: 20040923
  Receipt Date: 20040824
  Transmission Date: 20050211
  Serious: Yes (Hospitalization)
  Sender: FDA-Public Use
  Company Number: 208630

PATIENT
  Sex: Male

DRUGS (1)
  1. AVASTIN [Suspect]

REACTIONS (1)
  - INTESTINAL STOMA SITE BLEEDING [None]
